FAERS Safety Report 5714612-6 (Version None)
Quarter: 2008Q2

REPORT INFORMATION
  Report Type: 
  Country: None (occurrence: None)
  Receive Date: 20080423
  Receipt Date: 20080416
  Transmission Date: 20081010
  Serious: Yes (Life-Threatening, Other)
  Sender: FDA-Public Use
  Company Number: B0490536A

PATIENT
  Age: 2 Year
  Sex: Male

DRUGS (2)
  1. ALBENDAZOLE [Suspect]
     Dosage: 400MG SINGLE DOSE
     Route: 048
     Dates: start: 20070623, end: 20070623
  2. DIETHYLCARBAMAZINE CITRATE [Suspect]
     Dosage: 100MG SINGLE DOSE
     Route: 048
     Dates: start: 20070623, end: 20070623

REACTIONS (3)
  - BRAIN OEDEMA [None]
  - CONVULSION [None]
  - LOSS OF CONSCIOUSNESS [None]
